FAERS Safety Report 7152430-5 (Version None)
Quarter: 2010Q4

REPORT INFORMATION
  Report Type: 
  Country: None (occurrence: None)
  Receive Date: 20101208
  Receipt Date: 20101208
  Transmission Date: 20110411
  Serious: Yes (Hospitalization)
  Sender: FDA-Public Use
  Company Number: None

PATIENT
  Age: 70 Year
  Sex: Male
  Weight: 75 kg

DRUGS (2)
  1. VORINOSTAT 300MG PO DAYS 1-8 [Suspect]
     Indication: MULTIPLE MYELOMA
     Dosage: DOXIL 22.5MG/M2 IV D4
     Route: 042
     Dates: start: 20101123, end: 20101203
  2. DORTEZOMIB 1MG/ML IV D1,4,8,11 [Suspect]

REACTIONS (2)
  - DEVICE INFUSION ISSUE [None]
  - HYPERTENSION [None]
